FAERS Safety Report 5711530-4 (Version None)
Quarter: 2008Q2

REPORT INFORMATION
  Report Type: 
  Country: None (occurrence: None)
  Receive Date: 20080418
  Receipt Date: 20080418
  Transmission Date: 20081010
  Serious: Yes (Other)
  Sender: FDA-Public Use
  Company Number: None

PATIENT
  Age: 26 Year
  Sex: Female
  Weight: 87.0906 kg

DRUGS (2)
  1. ZYRTEC [Suspect]
     Indication: RHINORRHOEA
     Dosage: 10MG
  2. ZYRTEC [Suspect]
     Indication: SNEEZING
     Dosage: 10MG

REACTIONS (2)
  - PRURITUS [None]
  - URTICARIA [None]
